FAERS Safety Report 9497099 (Version 3)
Quarter: 2014Q4

REPORT INFORMATION
  Report Type: Spontaneous
  Country: US (occurrence: US)
  Receive Date: 20130904
  Receipt Date: 20141209
  Transmission Date: 20150529
  Serious: Yes (Hospitalization, Other)
  Sender: FDA-Public Use
  Company Number: US-BAYER-2013-105655

PATIENT
  Age: 17 Year
  Sex: Female
  Weight: 49.89 kg

DRUGS (1)
  1. MIRENA [Suspect]
     Active Substance: LEVONORGESTREL
     Dosage: 20 MCG/24HR, CONT
     Route: 015
     Dates: start: 20110921, end: 20111125

REACTIONS (8)
  - Uterine perforation [None]
  - Device dislocation [None]
  - Vaginal haemorrhage [None]
  - Abdominal pain lower [None]
  - Medical device pain [None]
  - Infection [None]
  - Injury [None]
  - Device dislocation [None]
